FAERS Safety Report 7747686-1 (Version None)
Quarter: 2011Q3

REPORT INFORMATION
  Report Type: 
  Country: None (occurrence: None)
  Receive Date: 20110913
  Receipt Date: 20110902
  Transmission Date: 20111222
  Serious: Yes (Hospitalization)
  Sender: FDA-Public Use
  Company Number: US-VERTEX PHARMACEUTICALS INC.-AE-2011-001387

PATIENT
  Age: 50 Year
  Sex: Female

DRUGS (3)
  1. RIBAVIRIN [Concomitant]
     Indication: HEPATITIS C
  2. PEGINTERFERON [Concomitant]
     Indication: HEPATITIS C
  3. INCIVEK [Suspect]
     Indication: HEPATITIS C

REACTIONS (4)
  - SEPSIS [None]
  - PANCYTOPENIA [None]
  - RESPIRATORY DISORDER [None]
  - OROPHARYNGEAL PAIN [None]
